FAERS Safety Report 5690986-X (Version None)
Quarter: 2008Q2

REPORT INFORMATION
  Report Type: 
  Country: None (occurrence: None)
  Receive Date: 20080401
  Receipt Date: 20080325
  Transmission Date: 20081010
  Serious: Yes (Other)
  Sender: FDA-Public Use
  Company Number: US-ELI_LILLY_AND_COMPANY-US200803005947

PATIENT
  Sex: Male

DRUGS (2)
  1. HUMALOG [Suspect]
     Route: 064
     Dates: start: 19840801
  2. DIAZOXIDE [Concomitant]
     Indication: HYPOGLYCAEMIA

REACTIONS (6)
  - DRUG EXPOSURE DURING PREGNANCY [None]
  - DRUG EXPOSURE VIA BREAST MILK [None]
  - FOETAL DISTRESS SYNDROME [None]
  - HYPOGLYCAEMIA [None]
  - PREMATURE BABY [None]
  - SMALL FOR DATES BABY [None]
